FAERS Safety Report 12010790 (Version 3)
Quarter: 2016Q1

REPORT INFORMATION
  Report Type: Spontaneous
  Country: PT (occurrence: PT)
  Receive Date: 20160205
  Receipt Date: 20160316
  Transmission Date: 20160526
  Serious: Yes (Other)
  Sender: FDA-Public Use
  Company Number: PT-DEP_13567_2016

PATIENT
  Age: 51 Year
  Sex: Female

DRUGS (14)
  1. VICTAN (ETHYL LOFLAZEPATE) [Concomitant]
  2. NUTRIENTS NOS (NUTRIENTS NOS) [Concomitant]
     Dosage: DF
     Dates: start: 20151203, end: 20160111
  3. NUTRIENTS NOS (NUTRIENTS NOS) [Concomitant]
     Indication: BONE DISORDER
     Dosage: DF
  4. PRAVASTATIN [Concomitant]
     Active Substance: PRAVASTATIN\PRAVASTATIN SODIUM
     Indication: BLOOD CHOLESTEROL
  5. ZOLPIDEM (ZOLPIDEM) [Concomitant]
     Active Substance: ZOLPIDEM TARTRATE
     Indication: SLEEP DISORDER
     Dosage: AT NIGHT
  6. IDEOS (CALCIUM CARBONATE, COLECALCIFEROL) [Concomitant]
     Indication: BONE DISORDER
     Dosage: DF
  7. PALEXIA [Suspect]
     Active Substance: TAPENTADOL HYDROCHLORIDE
  8. EUTIROX (LEVOTHYROXINE SODIUM) [Concomitant]
     Active Substance: LEVOTHYROXINE SODIUM
     Indication: THYROID DISORDER
  9. PANTOPRAZOLE (PANTOPRAZOLE) [Concomitant]
     Active Substance: PANTOPRAZOLE SODIUM
     Dosage: IN FASTING
  10. LOSARTAN (LOSARTAN) [Concomitant]
     Active Substance: LOSARTAN
     Indication: HYPERTENSION
  11. TRITICUM (TRAZODONE HYDROCHLORIDE) [Concomitant]
     Active Substance: TRAZODONE HYDROCHLORIDE
  12. PALEXIA [Suspect]
     Active Substance: TAPENTADOL HYDROCHLORIDE
     Indication: ARTHRALGIA
     Route: 048
  13. VENLAFAXINE [Concomitant]
     Active Substance: VENLAFAXINE HYDROCHLORIDE
     Indication: DEPRESSION
  14. LETROZOL (LETROZOLE) [Concomitant]
     Indication: BREAST CANCER

REACTIONS (6)
  - Chest pain [Recovered/Resolved]
  - Confusional state [Recovered/Resolved]
  - Constipation [Recovered/Resolved]
  - Disorientation [Recovered/Resolved]
  - Vision blurred [Recovered/Resolved]
  - Irritability [Recovered/Resolved]

NARRATIVE: CASE EVENT DATE: 20151203
